FAERS Safety Report 14243488 (Version 3)
Quarter: 2018Q1

REPORT INFORMATION
  Report Type: Report from Study
  Country: GB (occurrence: GB)
  Receive Date: 20171201
  Receipt Date: 20180324
  Transmission Date: 20180508
  Serious: Yes (Hospitalization, Other)
  Sender: FDA-Public Use
  Company Number: GB-BRISTOL-MYERS SQUIBB COMPANY-BMS-2017-105151

PATIENT
  Sex: Female

DRUGS (1)
  1. ABATACEPT [Suspect]
     Active Substance: ABATACEPT
     Indication: RHEUMATOID ARTHRITIS
     Dosage: 125 MG, UNK
     Route: 058
     Dates: start: 20170808

REACTIONS (7)
  - Rheumatoid arthritis [Unknown]
  - Muscle tightness [Unknown]
  - Gingival pain [Unknown]
  - Malaise [Unknown]
  - Respiration abnormal [Unknown]
  - Dyspepsia [Unknown]
  - Lower respiratory tract infection [Unknown]
